FAERS Safety Report 6139682-5 (Version None)
Quarter: 2009Q2

REPORT INFORMATION
  Report Type: 
  Country: None (occurrence: None)
  Receive Date: 20090401
  Receipt Date: 20090324
  Transmission Date: 20091009
  Serious: Yes (Hospitalization)
  Sender: FDA-Public Use
  Company Number: GR-ABBOTT-09P-066-0499134-00

PATIENT
  Age: 64 Year
  Sex: Female
  Weight: 57.1 kg

DRUGS (11)
  1. ZEMPLAR [Suspect]
     Indication: HYPERPARATHYROIDISM SECONDARY
     Route: 042
     Dates: start: 20070302, end: 20090114
  2. MIRCERA [Concomitant]
     Indication: ANAEMIA
     Route: 042
  3. LOPRESSOR [Concomitant]
     Indication: HYPERTENSION
     Dosage: ON HALF BID
     Route: 048
  4. VENOFER [Concomitant]
     Indication: ANAEMIA
     Dosage: 1/2 PER WEEK
     Route: 042
  5. NEUROBION [Concomitant]
     Indication: VITAMIN SUPPLEMENTATION
     Route: 042
  6. INTELECTA [Concomitant]
     Indication: VITAMIN SUPPLEMENTATION
     Route: 042
  7. INNOHEP [Concomitant]
     Indication: ANTICOAGULANT THERAPY
     Route: 042
  8. RENAGEL [Concomitant]
     Indication: HYPERPHOSPHATAEMIA
     Route: 048
  9. LOPID [Concomitant]
     Indication: DYSLIPIDAEMIA
     Route: 048
  10. VASTAREL [Concomitant]
     Indication: VERTIGO
     Dosage: 1/2
     Route: 048
  11. FILICINE [Concomitant]
     Indication: VITAMIN SUPPLEMENTATION
     Route: 048

REACTIONS (1)
  - ABDOMINAL PAIN UPPER [None]
